FAERS Safety Report 9284832 (Version 1)
Quarter: 2013Q2

REPORT INFORMATION
  Report Type: Spontaneous
  Country: FR (occurrence: FR)
  Receive Date: 20130513
  Receipt Date: 20130513
  Transmission Date: 20140414
  Serious: Yes (Hospitalization)
  Sender: FDA-Public Use
  Company Number: FR-ROCHE-1221462

PATIENT
  Age: 68 Year
  Sex: Female

DRUGS (8)
  1. VALIUM [Suspect]
     Indication: PRODUCT USED FOR UNKNOWN INDICATION
     Dosage: DIVISIBLE TABLET
     Route: 048
  2. COVERSYL [Suspect]
     Indication: PRODUCT USED FOR UNKNOWN INDICATION
     Route: 048
     Dates: start: 20121127, end: 20121216
  3. TERCIAN [Suspect]
     Indication: PRODUCT USED FOR UNKNOWN INDICATION
     Route: 048
  4. LYRICA [Suspect]
     Indication: PRODUCT USED FOR UNKNOWN INDICATION
     Route: 048
  5. DIFFU K [Concomitant]
     Route: 048
  6. DAFALGAN [Concomitant]
     Route: 048
  7. METEOSPASMYL [Concomitant]
     Route: 065
  8. NOCTAMIDE [Concomitant]

REACTIONS (3)
  - Hypotension [Unknown]
  - Fall [Unknown]
  - Injury [Unknown]
